FAERS Safety Report 9066341 (Version 1)
Quarter: 2013Q1

REPORT INFORMATION
  Report Type: Spontaneous
  Country: AT (occurrence: AT)
  Receive Date: 20130214
  Receipt Date: 20130214
  Transmission Date: 20140127
  Serious: Yes (Hospitalization, Other)
  Sender: FDA-Public Use
  Company Number: AT-ASTRAZENECA-2013SE09285

PATIENT
  Age: 74 Year
  Sex: Female

DRUGS (9)
  1. UNASYN [Suspect]
     Dosage: 9000 DAILY
     Route: 065
     Dates: start: 20121004, end: 20121011
  2. ATACAND [Suspect]
     Route: 048
     Dates: start: 20121010, end: 20121022
  3. EFECTIN ER [Suspect]
     Route: 048
     Dates: start: 20121008, end: 20121010
  4. EFECTIN ER [Suspect]
     Route: 048
     Dates: start: 20121011, end: 20121022
  5. RIVOTRIL [Suspect]
     Route: 065
     Dates: start: 20121008, end: 20121022
  6. TRITTICO [Suspect]
     Route: 065
     Dates: end: 20121022
  7. DEANXIT [Suspect]
     Dosage: 2 DRG
     Route: 065
     Dates: end: 20121022
  8. SAROTEN [Suspect]
     Route: 065
     Dates: start: 20121009, end: 20121015
  9. LYRICA [Suspect]
     Route: 065
     Dates: start: 20121009, end: 20121022

REACTIONS (6)
  - Femoral neck fracture [Recovered/Resolved]
  - Fall [Recovered/Resolved]
  - Confusional state [Unknown]
  - Contusion [Unknown]
  - Contusion [Unknown]
  - Contusion [Unknown]
